FAERS Safety Report 5313236-2 (Version None)
Quarter: 2007Q2

REPORT INFORMATION
  Report Type: 
  Country: None (occurrence: None)
  Receive Date: 20070501
  Receipt Date: 20070420
  Transmission Date: 20071010
  Serious: Yes (Hospitalization)
  Sender: FDA-Public Use
  Company Number: PHBS2007BR07306

PATIENT
  Age: 74 Year
  Sex: Male
  Weight: 40 kg

DRUGS (2)
  1. FLUIMUCIL [Concomitant]
  2. FORASEQ [Suspect]
     Dosage: UNK, UNK

REACTIONS (3)
  - CHRONIC OBSTRUCTIVE PULMONARY DISEASE [None]
  - CONDITION AGGRAVATED [None]
  - RESPIRATORY TRACT INFECTION [None]
